FAERS Safety Report 15286841 (Version 2)
Quarter: 2018Q3

REPORT INFORMATION
  Report Type: Report from Study
  Country: AR (occurrence: AR)
  Receive Date: 20180816
  Receipt Date: 20180925
  Transmission Date: 20181010
  Serious: Yes (Hospitalization)
  Sender: FDA-Public Use
  Company Number: AR-BIOGEN-2018BI00621816

PATIENT
  Age: 48 Year
  Sex: Male

DRUGS (4)
  1. TYSABRI [Suspect]
     Active Substance: NATALIZUMAB
     Route: 042
     Dates: start: 20180914
  2. TYSABRI [Suspect]
     Active Substance: NATALIZUMAB
     Indication: MULTIPLE SCLEROSIS
     Dosage: INFUSED OVER 1 HOUR; STOPPED TEMPORARILY FOR THREE MONTHS
     Route: 042
     Dates: start: 2013
  3. TYSABRI [Suspect]
     Active Substance: NATALIZUMAB
     Route: 042
     Dates: start: 2016
  4. TYSABRI [Suspect]
     Active Substance: NATALIZUMAB
     Dosage: STOPPED FOR ONE MONTH DUE TO DIFFICULT IN PROVISION OF THE MEDICATION.
     Route: 042
     Dates: end: 2016

REACTIONS (4)
  - Toothache [Recovered/Resolved]
  - Ear pain [Unknown]
  - Nasal congestion [Recovered/Resolved]
  - Urinary tract infection [Recovered/Resolved]

NARRATIVE: CASE EVENT DATE: 20180810
